FAERS Safety Report 10646039 (Version 6)
Quarter: 2019Q2

REPORT INFORMATION
  Report Type: Report from Study
  Country: US (occurrence: US)
  Receive Date: 20141211
  Receipt Date: 20190617
  Transmission Date: 20190711
  Serious: Yes (Hospitalization)
  Sender: FDA-Public Use
  Company Number: US-SA-2014SA167431

PATIENT
  Age: 66 Year
  Sex: Female
  Weight: 74.8 kg

DRUGS (11)
  1. INSULIN GLARGINE [Suspect]
     Active Substance: INSULIN GLARGINE
     Indication: TYPE 2 DIABETES MELLITUS
     Dosage: 33 DF, HS
     Dates: start: 201310
  2. INSULIN GLARGINE [Suspect]
     Active Substance: INSULIN GLARGINE
     Dosage: 33 DF, HS
  3. INSULIN GLARGINE [Suspect]
     Active Substance: INSULIN GLARGINE
     Dosage: 60 U, QD
     Route: 058
  4. AMIODARONE [Concomitant]
     Active Substance: AMIODARONE
     Indication: CARDIAC DISORDER
     Dosage: 1 DF,QD
     Dates: start: 201407
  5. WARFARIN [Concomitant]
     Active Substance: WARFARIN
     Indication: BLOOD DISORDER
     Dosage: 2 MG,QD
     Dates: start: 200908
  6. INSULIN GLARGINE [Suspect]
     Active Substance: INSULIN GLARGINE
     Dosage: UNK UNK, BID
     Route: 060
     Dates: start: 201311
  7. FUROSEMIDE. [Concomitant]
     Active Substance: FUROSEMIDE
     Indication: FLUID IMBALANCE
     Dosage: 40 MG,QD
     Dates: start: 200008
  8. LEVOTHYROXINE. [Concomitant]
     Active Substance: LEVOTHYROXINE
     Indication: THYROID DISORDER
     Dosage: 1 DF,QD
     Dates: start: 200908
  9. INSULIN GLARGINE [Suspect]
     Active Substance: INSULIN GLARGINE
     Dosage: 40 UNITS IN THE MORNING AND 40 UNITS AT NIGHT, BID
     Route: 058
  10. INSULIN GLARGINE [Suspect]
     Active Substance: INSULIN GLARGINE
     Dosage: 70 U
     Route: 058
  11. LISINOPRIL. [Concomitant]
     Active Substance: LISINOPRIL
     Indication: HYPERTENSION
     Dosage: 10 MG,QD
     Dates: start: 200008

REACTIONS (14)
  - Rotator cuff syndrome [Recovered/Resolved]
  - Malaise [Recovering/Resolving]
  - Heart valve operation [Unknown]
  - Pulmonary oedema [Recovering/Resolving]
  - Nausea [Recovering/Resolving]
  - Pain in extremity [Recovered/Resolved]
  - Malaise [Recovered/Resolved]
  - Glycosylated haemoglobin increased [Recovered/Resolved]
  - Blood glucose increased [Recovered/Resolved]
  - Gallbladder disorder [Recovered/Resolved]
  - Accident [Recovered/Resolved]
  - Procedural pain [Not Recovered/Not Resolved]
  - Wrong technique in product usage process [Unknown]
  - Off label use [Unknown]

NARRATIVE: CASE EVENT DATE: 20141016
